FAERS Safety Report 9564502 (Version 1)
Quarter: 2013Q3

REPORT INFORMATION
  Report Type: Spontaneous
  Country: FR (occurrence: FR)
  Receive Date: 20130930
  Receipt Date: 20130930
  Transmission Date: 20140515
  Serious: Yes (Hospitalization)
  Sender: FDA-Public Use
  Company Number: FR-ROCHE-1281829

PATIENT
  Age: 66 Year
  Sex: Male

DRUGS (14)
  1. CELLCEPT [Suspect]
     Indication: KIDNEY TRANSPLANT REJECTION
     Route: 048
     Dates: start: 201305, end: 20130830
  2. CELLCEPT [Suspect]
     Route: 048
     Dates: start: 20130906
  3. ROVALCYTE [Suspect]
     Indication: PRODUCT USED FOR UNKNOWN INDICATION
     Route: 048
     Dates: start: 201305, end: 20130830
  4. BACTRIM [Suspect]
     Indication: PRODUCT USED FOR UNKNOWN INDICATION
     Dosage: 400 MG
     Route: 048
     Dates: start: 201305, end: 20130830
  5. PROGRAF [Concomitant]
     Route: 048
     Dates: start: 20130812
  6. CICLOSPORINE [Concomitant]
     Route: 065
  7. SOLUPRED (FRANCE) [Concomitant]
     Route: 065
  8. AMLOR [Concomitant]
     Route: 065
  9. MOPRAL (FRANCE) [Concomitant]
     Route: 065
  10. VASTEN [Concomitant]
     Route: 065
  11. SODIUM BICARBONATE [Concomitant]
     Route: 065
  12. LEVOTHYROX [Concomitant]
     Route: 065
  13. PLAVIX [Concomitant]
     Route: 065
  14. TARDYFERON (FRANCE) [Concomitant]

REACTIONS (2)
  - Agranulocytosis [Recovered/Resolved]
  - Leukopenia [Recovered/Resolved]
